FAERS Safety Report 6507230-3 (Version None)
Quarter: 2009Q4

REPORT INFORMATION
  Report Type: 
  Country: None (occurrence: None)
  Receive Date: 20091221
  Receipt Date: 20091214
  Transmission Date: 20100525
  Serious: Yes (Death, Other)
  Sender: FDA-Public Use
  Company Number: PHEH2009US16171

PATIENT
  Sex: Male
  Weight: 74.6 kg

DRUGS (9)
  1. EXJADE [Suspect]
     Indication: MYELODYSPLASTIC SYNDROME
     Dosage: 1500 MG DAILY
     Route: 048
     Dates: start: 20090630, end: 20091101
  2. EXJADE [Suspect]
     Indication: IRON OVERLOAD
  3. PROPRANOLOL [Concomitant]
     Indication: HYPERTENSION
     Dosage: 10 MG, BID
     Route: 048
     Dates: end: 20091101
  4. HYDROCHLOROTHIAZIDE [Concomitant]
     Indication: HYPERTENSION
     Dosage: 25 MG DAILY
     Route: 048
     Dates: end: 20091101
  5. ENALAPRIL [Concomitant]
     Indication: HYPERTENSION
     Dosage: 20 MG, BID
     Route: 048
     Dates: end: 20091101
  6. METFORMIN HCL [Concomitant]
     Indication: DIABETES MELLITUS
     Dosage: 1000 MG, BID
     Route: 048
     Dates: end: 20091101
  7. SIMVASTATIN [Concomitant]
     Indication: HYPERCHOLESTEROLAEMIA
     Dosage: 20 MG DAILY
     Route: 048
     Dates: end: 20091101
  8. CALCIUM [Concomitant]
     Indication: HYPOCALCAEMIA
     Dosage: 500 MG, BID
     Route: 048
     Dates: end: 20091101
  9. GLIMEPIRIDE [Concomitant]
     Indication: DIABETES MELLITUS
     Dosage: 6 MG, QD
     Route: 048
     Dates: end: 20091101

REACTIONS (4)
  - HYPOTENSION [None]
  - RESPIRATORY FAILURE [None]
  - SPLENECTOMY [None]
  - WEANING FAILURE [None]
